FAERS Safety Report 9316698 (Version 1)
Quarter: 2013Q2

REPORT INFORMATION
  Report Type: Spontaneous
  Country: US (occurrence: None)
  Receive Date: 20130528
  Receipt Date: 20130528
  Transmission Date: 20140414
  Serious: Yes (Hospitalization)
  Sender: FDA-Public Use
  Company Number: None

PATIENT
  Age: 59 Year
  Sex: Female
  Weight: 70.5 kg

DRUGS (2)
  1. ROSUVASTATIN [Suspect]
     Dates: start: 20120203, end: 20130524
  2. CLARITHROMYCIN [Concomitant]

REACTIONS (1)
  - Rhabdomyolysis [None]
